FAERS Safety Report 24301357 (Version 1)
Quarter: 2024Q3

REPORT INFORMATION
  Report Type: Spontaneous
  Country: CA (occurrence: CA)
  Receive Date: 20240910
  Receipt Date: 20240910
  Transmission Date: 20241016
  Serious: Yes (Other)
  Sender: CELLTRION
  Company Number: CA-PFIZER INC-202400248681

PATIENT

DRUGS (2)
  1. INFLECTRA [Suspect]
     Active Substance: INFLIXIMAB-DYYB
     Indication: Crohn^s disease
     Dosage: 5 MG/KG, W0, W2, W6 AND THEN EVERY 6 WEEKS
     Route: 042
     Dates: start: 20231103
  2. INFLECTRA [Suspect]
     Active Substance: INFLIXIMAB-DYYB
     Dosage: UNK
     Route: 042
     Dates: start: 20240830

REACTIONS (5)
  - Seizure [Recovering/Resolving]
  - Snoring [Recovering/Resolving]
  - Hypertension [Unknown]
  - Pallor [Recovering/Resolving]
  - Hyperhidrosis [Recovering/Resolving]

NARRATIVE: CASE EVENT DATE: 20240830
